FAERS Safety Report 5789895-7 (Version None)
Quarter: 2008Q2

REPORT INFORMATION
  Report Type: 
  Country: None (occurrence: None)
  Receive Date: 20080626
  Receipt Date: 20080624
  Transmission Date: 20081010
  Serious: Yes (Hospitalization)
  Sender: FDA-Public Use
  Company Number: US-BRISTOL-MYERS SQUIBB COMPANY-14133151

PATIENT
  Age: 73 Year
  Sex: Male
  Weight: 85 kg

DRUGS (10)
  1. CARBOPLATIN [Suspect]
     Indication: NON-SMALL CELL LUNG CANCER
     Dosage: DOSAGE FORM = AUC, LAST DOSE BEFORE THE EVENT WAS TAKEN ON 19-FEB-2008
     Route: 042
     Dates: start: 20080129, end: 20080219
  2. ENZASTAURIN [Suspect]
     Indication: NON-SMALL CELL LUNG CANCER
     Dosage: INITIAL LOADING DOSE WAS 1200 MG 1/D FROM 22-JAN-2008 TO 22-JAN-2008.
     Route: 048
     Dates: start: 20080123, end: 20080225
  3. ALIMTA [Suspect]
     Indication: NON-SMALL CELL LUNG CANCER
     Dosage: LAST DOSE TAKEN BEFORE THE EVENT WAS 19-FEB-2008
     Route: 042
     Dates: start: 20080129, end: 20080219
  4. FOLIC ACID [Concomitant]
     Dates: start: 20080111
  5. VITAMIN B-12 [Concomitant]
     Dates: start: 20080118
  6. VICODIN [Concomitant]
     Dates: start: 20080108
  7. CELEXA [Concomitant]
     Dates: start: 20080108
  8. PHENERGAN HCL [Concomitant]
     Dates: start: 20080219
  9. ALLEGRA [Concomitant]
     Dates: start: 20080220
  10. LEVAQUIN [Concomitant]

REACTIONS (3)
  - FEBRILE NEUTROPENIA [None]
  - LOBAR PNEUMONIA [None]
  - PULMONARY FIBROSIS [None]
